FAERS Safety Report 7689759-8 (Version None)
Quarter: 2011Q3

REPORT INFORMATION
  Report Type: 
  Country: None (occurrence: None)
  Receive Date: 20110817
  Receipt Date: 20110812
  Transmission Date: 20111222
  Serious: Yes (Other)
  Sender: FDA-Public Use
  Company Number: US-RB-027418-11

PATIENT
  Age: 40 Year
  Sex: Male

DRUGS (2)
  1. BUPRENORPHINE [Suspect]
     Indication: DRUG DEPENDENCE
     Route: 060
     Dates: start: 20100101
  2. SUBUTEX [Suspect]
     Indication: DRUG DEPENDENCE
     Route: 060
     Dates: start: 20080101, end: 20100101

REACTIONS (2)
  - TESTIS CANCER [None]
  - HAEMORRHOIDS [None]
